FAERS Safety Report 9357043 (Version 4)
Quarter: 2013Q3

REPORT INFORMATION
  Report Type: Spontaneous
  Country: US (occurrence: None)
  Receive Date: 20130617
  Receipt Date: 20130815
  Transmission Date: 20140515
  Serious: Yes (Other)
  Sender: FDA-Public Use
  Company Number: ADR-2013-00911

PATIENT
  Age: 36 Year
  Sex: Female

DRUGS (4)
  1. BACLOFEN [Suspect]
     Indication: CANCER PAIN
  2. DILAUDID (6.0 MG/ML) [Concomitant]
  3. BUPIVACAINE (30.0 MG/ML) [Concomitant]
  4. CLONIDINE (500 MCG/ML) [Concomitant]

REACTIONS (4)
  - Pain in extremity [None]
  - Neck pain [None]
  - Fracture [None]
  - Metastasis [None]
